FAERS Safety Report 4647473-7 (Version None)
Quarter: 2005Q2

REPORT INFORMATION
  Report Type: 
  Country: None (occurrence: None)
  Receive Date: 20050428
  Receipt Date: 20050418
  Transmission Date: 20051028
  Serious: Yes (Other)
  Sender: FDA-Public Use
  Company Number: US-KINGPHARMUSA00001-K200500511

PATIENT
  Age: 61 Year
  Sex: Female

DRUGS (2)
  1. ALTACE [Suspect]
     Indication: HYPERTENSION
     Dosage: 2.5 MG, QD
     Route: 048
     Dates: start: 20040628
  2. ALTACE [Suspect]
     Dosage: 5 MG, QD
     Route: 048
     Dates: end: 20050216

REACTIONS (13)
  - EOSINOPHIL COUNT INCREASED [None]
  - FEELING ABNORMAL [None]
  - FEELING COLD [None]
  - MENTAL DISORDER [None]
  - NAIL DISCOLOURATION [None]
  - NAIL DISORDER [None]
  - NASAL CONGESTION [None]
  - NAUSEA [None]
  - PITYRIASIS ROSEA [None]
  - PRURITUS [None]
  - PSORIASIS [None]
  - RASH MACULAR [None]
  - SKIN EXFOLIATION [None]
